FAERS Safety Report 26150902 (Version 1)
Quarter: 2025Q4

REPORT INFORMATION
  Report Type: Report from Study
  Country: US (occurrence: US)
  Receive Date: 20251212
  Receipt Date: 20251212
  Transmission Date: 20260118
  Serious: Yes (Other)
  Sender: MYLAN
  Company Number: US-MYLANLABS-2025M1105050

PATIENT

DRUGS (1)
  1. PHENTOLAMINE [Suspect]
     Active Substance: PHENTOLAMINE
     Indication: Product used for unknown indication
     Dosage: UNK

REACTIONS (2)
  - Intracranial aneurysm [Recovered/Resolved]
  - Ataxia [Recovered/Resolved]

NARRATIVE: CASE EVENT DATE: 20251104
